FAERS Safety Report 9597884 (Version 1)
Quarter: 2013Q4

REPORT INFORMATION
  Report Type: Spontaneous
  Country: US (occurrence: US)
  Receive Date: 20131004
  Receipt Date: 20131004
  Transmission Date: 20140711
  Serious: No
  Sender: FDA-Public Use
  Company Number: US-AMGEN-USASP2013021383

PATIENT
  Age: 38 Year
  Sex: Female
  Weight: 73.92 kg

DRUGS (7)
  1. ENBREL [Suspect]
     Indication: RHEUMATOID ARTHRITIS
     Dosage: UNK
     Dates: start: 20130101, end: 20130101
  2. PLAQUENIL                          /00072602/ [Concomitant]
     Dosage: UNK
  3. ARAVA [Concomitant]
     Dosage: UNK
  4. OMEGA 3                            /01334101/ [Concomitant]
     Dosage: UNK
  5. VITAMIN B12 [Concomitant]
     Dosage: UNK
  6. VIT C [Concomitant]
     Dosage: UNK
  7. MULTI-VIT [Concomitant]
     Dosage: UNK

REACTIONS (4)
  - Night sweats [Recovered/Resolved]
  - Pain [Recovered/Resolved]
  - Ear discomfort [Recovered/Resolved]
  - Influenza like illness [Recovered/Resolved]
